FAERS Safety Report 20311443 (Version 1)
Quarter: 2022Q1

REPORT INFORMATION
  Report Type: Spontaneous
  Country: US (occurrence: US)
  Receive Date: 20220108
  Receipt Date: 20220108
  Transmission Date: 20220423
  Serious: Yes (Other)
  Sender: FDA-Public Use
  Company Number: US-Shilpa Medicare Limited-SML-US-2021-01588

PATIENT
  Age: 36 Year
  Sex: Male

DRUGS (3)
  1. IMATINIB [Suspect]
     Active Substance: IMATINIB
     Indication: Chronic eosinophilic leukaemia
  2. IMATINIB [Suspect]
     Active Substance: IMATINIB
  3. HYDROXYUREA [Concomitant]
     Active Substance: HYDROXYUREA
     Indication: Eosinophilia

REACTIONS (4)
  - Polyarthritis [Unknown]
  - Dermatitis [Unknown]
  - Therapeutic response decreased [Unknown]
  - Drug resistance [Unknown]
